FAERS Safety Report 8030069-7 (Version None)
Quarter: 2012Q1

REPORT INFORMATION
  Report Type: 
  Country: None (occurrence: None)
  Receive Date: 20120105
  Receipt Date: 20111221
  Transmission Date: 20120608
  Serious: Yes (Hospitalization, Other)
  Sender: FDA-Public Use
  Company Number: CIP11000511

PATIENT
  Age: 79 Year
  Sex: Female
  Weight: 71.2147 kg

DRUGS (4)
  1. ALENDRONATE SODIUM [Suspect]
     Indication: OSTEOPOROSIS
     Dosage: 70  MG, ORAL
     Route: 048
     Dates: start: 20080209, end: 20081107
  2. FOSAMAX [Suspect]
     Indication: OSTEOPOROSIS
     Dosage: 70 MG ONCE WEEKLY, ORAL
     Route: 048
     Dates: start: 20060403, end: 20080115
  3. FOSAMAX [Suspect]
     Indication: OSTEOPOROSIS
     Dosage: 10 MG DAILY, ORAL
     Route: 048
  4. ACTONEL [Suspect]
     Indication: OSTEOPOROSIS
     Dosage: 35 MG UNKNOWN, ORAL
     Route: 048
     Dates: start: 20081112, end: 20080101

REACTIONS (12)
  - FEMUR FRACTURE [None]
  - ARTHRALGIA [None]
  - MUSCULAR WEAKNESS [None]
  - IMMOBILE [None]
  - OSTEOARTHRITIS [None]
  - STRESS FRACTURE [None]
  - HAEMORRHAGIC ANAEMIA [None]
  - FRACTURE DISPLACEMENT [None]
  - PATHOLOGICAL FRACTURE [None]
  - FALL [None]
  - PAIN IN EXTREMITY [None]
  - DYSSTASIA [None]
